FAERS Safety Report 17631874 (Version 1)
Quarter: 2020Q2

REPORT INFORMATION
  Report Type: Spontaneous
  Country: US (occurrence: US)
  Receive Date: 20200403
  Receipt Date: 20200403
  Transmission Date: 20200713
  Serious: Yes (Other)
  Sender: FDA-Public Use
  Company Number: None

PATIENT
  Age: 75 Year
  Sex: Female
  Weight: 47.17 kg

DRUGS (23)
  1. PREMARIN VAGINAL [Concomitant]
     Active Substance: ESTROGENS, CONJUGATED
  2. PROBIOTICS [Concomitant]
     Active Substance: PROBIOTICS NOS
  3. ATRGAHRS [Concomitant]
  4. BIOTIN [Concomitant]
     Active Substance: BIOTIN
  5. APPLE CIDER VINEGAR [Concomitant]
     Active Substance: APPLE CIDER VINEGAR
  6. FEXOFENADINE HCL [Concomitant]
     Active Substance: FEXOFENADINE HYDROCHLORIDE
  7. VENTOLIN HFA [Concomitant]
     Active Substance: ALBUTEROL SULFATE
  8. FLOVENT HFA [Concomitant]
     Active Substance: FLUTICASONE PROPIONATE
  9. ASHWAGANDA [Concomitant]
  10. CALCITONIN SALMON. [Concomitant]
     Active Substance: CALCITONIN SALMON
  11. IPRATROPIUM NASAL SPRAY [Concomitant]
     Active Substance: IPRATROPIUM
  12. MONTELUKAST TABS [Concomitant]
  13. VITAMIN C [Concomitant]
     Active Substance: ASCORBIC ACID
  14. PLANT ENZYMES [Concomitant]
  15. 5-HTP [Concomitant]
  16. TURMERIC [Concomitant]
     Active Substance: HERBALS\TURMERIC
  17. FAMOTIDINE. [Concomitant]
     Active Substance: FAMOTIDINE
  18. OMEGA 3 [Concomitant]
     Active Substance: OMEGA-3 FATTY ACIDS
  19. SAVELLA [Suspect]
     Active Substance: MILNACIPRAN HYDROCHLORIDE
     Indication: FIBROMYALGIA
     Route: 048
     Dates: start: 20200220, end: 20200225
  20. ALLERGY DROPS [Concomitant]
  21. MAGNESIUM [Concomitant]
     Active Substance: MAGNESIUM
  22. CORAL CALCIUM [Concomitant]
     Active Substance: DIETARY SUPPLEMENT
  23. PHENYLEPHRINE [Concomitant]
     Active Substance: PHENYLEPHRINE HYDROCHLORIDE

REACTIONS (9)
  - Constipation [None]
  - Hyperacusis [None]
  - Restlessness [None]
  - Dizziness [None]
  - Loss of personal independence in daily activities [None]
  - Feeling jittery [None]
  - Depression [None]
  - Photophobia [None]
  - Nausea [None]

NARRATIVE: CASE EVENT DATE: 20200222
